FAERS Safety Report 19310184 (Version 1)
Quarter: 2021Q2

REPORT INFORMATION
  Report Type: Spontaneous
  Country: BR (occurrence: BR)
  Receive Date: 20210526
  Receipt Date: 20210526
  Transmission Date: 20210717
  Serious: Yes (Other)
  Sender: FDA-Public Use
  Company Number: BR-PFIZER INC-2021574480

PATIENT
  Age: 70 Year

DRUGS (2)
  1. SUTENT [Suspect]
     Active Substance: SUNITINIB MALATE
     Dosage: UNK
     Dates: start: 20200311, end: 20210403
  2. SUTENT [Suspect]
     Active Substance: SUNITINIB MALATE
     Indication: GASTROINTESTINAL STROMAL TUMOUR
     Dosage: UNK (USING ONE WEEK AND RESTING ONE WEEK)
     Dates: start: 202006

REACTIONS (3)
  - Off label use [Unknown]
  - Encephalopathy [Unknown]
  - Ammonia increased [Unknown]

NARRATIVE: CASE EVENT DATE: 202006
